FAERS Safety Report 4619481-3 (Version None)
Quarter: 2005Q1

REPORT INFORMATION
  Report Type: 
  Country: None (occurrence: None)
  Receive Date: 20050325
  Receipt Date: 20050316
  Transmission Date: 20050727
  Serious: Yes (Death)
  Sender: FDA-Public Use
  Company Number: US-JNJFOC-20050305131

PATIENT
  Sex: Male
  Weight: 56 kg

DRUGS (5)
  1. RISPERDAL [Suspect]
     Indication: SCHIZOPHRENIA
     Route: 065
  2. BIFEPRUNOX [Suspect]
     Indication: SCHIZOPHRENIA
  3. CHLORPROMAZINE [Concomitant]
     Indication: SCHIZOPHRENIA
  4. PERPHENAZINE [Concomitant]
     Indication: SCHIZOPHRENIA
  5. BENZHEXOL [Concomitant]

REACTIONS (4)
  - DELUSION [None]
  - DRUG EFFECT DECREASED [None]
  - FALL [None]
  - HALLUCINATION [None]
